FAERS Safety Report 9637525 (Version 2)
Quarter: 2013Q4

REPORT INFORMATION
  Report Type: Report from Study
  Country: US (occurrence: US)
  Receive Date: 20131022
  Receipt Date: 20131022
  Transmission Date: 20140711
  Serious: Yes (Hospitalization)
  Sender: FDA-Public Use
  Company Number: PHHO2009US14026

PATIENT
  Age: 73 Year
  Sex: Male

DRUGS (1)
  1. SOM230 [Suspect]
     Indication: PANCREATIC CARCINOMA
     Dosage: 900 MG, BID
     Route: 058
     Dates: start: 20091028

REACTIONS (3)
  - Post procedural discharge [Recovered/Resolved]
  - Wound dehiscence [Recovered/Resolved]
  - Ascites [Recovered/Resolved]
